FAERS Safety Report 24319578 (Version 1)
Quarter: 2024Q3

REPORT INFORMATION
  Report Type: Spontaneous
  Country: AU (occurrence: AU)
  Receive Date: 20240914
  Receipt Date: 20240914
  Transmission Date: 20241017
  Serious: Yes (Other)
  Sender: ROCHE
  Company Number: AU-ROCHE-10000076871

PATIENT
  Age: 67 Year
  Sex: Male

DRUGS (1)
  1. ATEZOLIZUMAB [Suspect]
     Active Substance: ATEZOLIZUMAB
     Indication: Small cell lung cancer extensive stage
     Dosage: ON ATEZOLIZUMAB FOR ES-SCLC AND ON MAINTENANCE THERAPY POST CARBOPLATIN AND ETOPOSIDE
     Route: 065

REACTIONS (1)
  - Disease progression [Unknown]
